FAERS Safety Report 4708527-X (Version None)
Quarter: 2005Q3

REPORT INFORMATION
  Report Type: 
  Country: None (occurrence: None)
  Receive Date: 20050706
  Receipt Date: 20050624
  Transmission Date: 20060218
  Serious: Yes (Hospitalization)
  Sender: FDA-Public Use
  Company Number: S05-USA-03304-01

PATIENT
  Age: 28 Year
  Sex: Female

DRUGS (4)
  1. CITALOPRAM [Suspect]
     Indication: ANXIETY
     Dates: end: 20050324
  2. CITALOPRAM [Suspect]
     Indication: DEPRESSION
     Dates: end: 20050324
  3. WELLBUTRIN [Suspect]
     Indication: ANXIETY
     Dates: start: 20040301, end: 20050324
  4. WELLBUTRIN [Suspect]
     Indication: DEPRESSION
     Dates: start: 20040301, end: 20050324

REACTIONS (7)
  - DIZZINESS [None]
  - EPILEPSY [None]
  - FALL [None]
  - FATIGUE [None]
  - HEAD INJURY [None]
  - MEMORY IMPAIRMENT [None]
  - POSTICTAL HEADACHE [None]
